FAERS Safety Report 9645456 (Version 1)
Quarter: 2013Q4

REPORT INFORMATION
  Report Type: Spontaneous
  Country: IT (occurrence: IT)
  Receive Date: 20131025
  Receipt Date: 20131025
  Transmission Date: 20140711
  Serious: Yes (Other)
  Sender: FDA-Public Use
  Company Number: IT-SA-2013SA105724

PATIENT
  Age: 74 Year
  Sex: Female

DRUGS (9)
  1. LASIX [Suspect]
     Indication: HYPERTENSION
     Route: 048
     Dates: start: 20130920, end: 20130920
  2. NEO-LOTAN PLUS 50 MG + 12,5 MG COMPRESSE RIVESTITE CON FILM [Suspect]
     Indication: HYPERTENSION
     Route: 048
     Dates: start: 20130901, end: 20130920
  3. LEXOTAN [Suspect]
     Indication: ANXIETY
     Route: 048
     Dates: start: 20130920, end: 20130920
  4. PANTOPRAZOLE [Concomitant]
     Route: 048
  5. ATORVASTATIN [Concomitant]
     Route: 048
  6. SERTRALINE [Concomitant]
     Route: 048
  7. AMOXICILLIN [Concomitant]
     Route: 048
  8. TILDIEM [Concomitant]
     Route: 048
  9. RYTMONORM [Concomitant]
     Dosage: DOSE: 1 POSOLOGICAL UNIT DOSE:1 UNIT(S)
     Route: 048

REACTIONS (5)
  - Orthostatic hypotension [Recovering/Resolving]
  - Syncope [Recovering/Resolving]
  - Head injury [Recovering/Resolving]
  - Facial bones fracture [Recovering/Resolving]
  - Facial bones fracture [Recovering/Resolving]
